FAERS Safety Report 11065762 (Version 1)
Quarter: 2015Q2

REPORT INFORMATION
  Report Type: Spontaneous
  Country: US (occurrence: None)
  Receive Date: 20150423
  Receipt Date: 20150423
  Transmission Date: 20150821
  Serious: Yes (Death, Congenital Anomaly)
  Sender: FDA-Public Use
  Company Number: ZYD-15-AE-131

PATIENT
  Age: 0 Day
  Sex: Female

DRUGS (4)
  1. VITAMIN D [Concomitant]
     Active Substance: CHOLECALCIFEROL
  2. EPIDURAL [Concomitant]
  3. PRENATAL VITAMINS [Concomitant]
     Active Substance: VITAMINS
  4. PROMETHAZINE HCL [Suspect]
     Active Substance: PROMETHAZINE HYDROCHLORIDE
     Indication: NAUSEA
     Dosage: 25 MG, PRN NAUSEA, ORAL
     Route: 048
     Dates: start: 20140418, end: 201406

REACTIONS (4)
  - Maternal drugs affecting foetus [None]
  - Anencephaly [None]
  - Stillbirth [None]
  - Product quality issue [None]

NARRATIVE: CASE EVENT DATE: 20140826
